FAERS Safety Report 5387759-4 (Version None)
Quarter: 2007Q3

REPORT INFORMATION
  Report Type: 
  Country: None (occurrence: None)
  Receive Date: 20070716
  Receipt Date: 20070712
  Transmission Date: 20080115
  Serious: Yes (Hospitalization)
  Sender: FDA-Public Use
  Company Number: B0479144A

PATIENT
  Age: 77 Year
  Sex: Male
  Weight: 75 kg

DRUGS (13)
  1. AVODART [Suspect]
     Dosage: 1CAP PER DAY
     Route: 048
     Dates: start: 20070101
  2. ALLOPURINOL [Suspect]
     Dosage: 200MG PER DAY
     Route: 048
     Dates: start: 20070301
  3. ARICEPT [Suspect]
     Dosage: 10MG PER DAY
     Route: 048
     Dates: start: 20070401
  4. MINIRIN [Suspect]
     Dosage: .2MG PER DAY
     Route: 065
     Dates: start: 20070301
  5. INSULIN [Concomitant]
     Route: 065
  6. GLUCOPHAGE [Concomitant]
     Route: 065
  7. AMARYL [Concomitant]
     Route: 065
  8. LIPANTHYL [Concomitant]
     Route: 065
  9. COAPROVEL [Concomitant]
     Route: 065
  10. MONOTILDIEM [Concomitant]
     Route: 065
  11. ASPEGIC 325 [Concomitant]
     Route: 065
  12. UVEDOSE [Concomitant]
     Route: 065
  13. ZOLPIDEM TARTRATE [Concomitant]
     Route: 065

REACTIONS (8)
  - ACUTE FEBRILE NEUTROPHILIC DERMATOSIS [None]
  - ARTHRALGIA [None]
  - GENERAL PHYSICAL HEALTH DETERIORATION [None]
  - INFLAMMATION [None]
  - PARAESTHESIA [None]
  - PYREXIA [None]
  - RASH PAPULAR [None]
  - RASH VESICULAR [None]
